FAERS Safety Report 24353545 (Version 1)
Quarter: 2024Q3

REPORT INFORMATION
  Report Type: Spontaneous
  Country: US (occurrence: US)
  Receive Date: 20240923
  Receipt Date: 20240923
  Transmission Date: 20241016
  Serious: No
  Sender: PFIZER
  Company Number: US-PFIZER INC-PV202400123115

PATIENT
  Age: 70 Year
  Sex: Female

DRUGS (1)
  1. TUKYSA [Suspect]
     Active Substance: TUCATINIB
     Dosage: 150 MG

REACTIONS (5)
  - COVID-19 [Unknown]
  - Respiratory syncytial virus infection [Unknown]
  - Malaise [Unknown]
  - Nausea [Unknown]
  - Decreased immune responsiveness [Unknown]
